FAERS Safety Report 24002985 (Version 1)
Quarter: 2024Q2

REPORT INFORMATION
  Report Type: Spontaneous
  Country: US (occurrence: US)
  Receive Date: 20240624
  Receipt Date: 20240624
  Transmission Date: 20240716
  Serious: No
  Sender: FDA-Public Use
  Company Number: US-SA-SAC20240617000268

PATIENT
  Sex: Male

DRUGS (1)
  1. DUPIXENT [Suspect]
     Active Substance: DUPILUMAB
     Indication: Dermatitis
     Dosage: 300MG EVERY 28 DAYS
     Route: 058

REACTIONS (4)
  - Cough [Unknown]
  - Productive cough [Unknown]
  - Dermatitis [Unknown]
  - Product use in unapproved indication [Unknown]
